FAERS Safety Report 9485705 (Version 3)
Quarter: 2013Q3

REPORT INFORMATION
  Report Type: Spontaneous
  Country: US (occurrence: US)
  Receive Date: 20130829
  Receipt Date: 20130927
  Transmission Date: 20140515
  Serious: No
  Sender: FDA-Public Use
  Company Number: US-009507513-1308USA011116

PATIENT
  Age: 22 Year
  Sex: Female
  Weight: 59.48 kg

DRUGS (1)
  1. IMPLANON [Suspect]
     Indication: CONTRACEPTION
     Dosage: UNK
     Dates: start: 20120523

REACTIONS (3)
  - Unintended pregnancy [Unknown]
  - Medical device complication [Unknown]
  - Device deployment issue [Unknown]
